FAERS Safety Report 12737076 (Version 1)
Quarter: 2016Q3

REPORT INFORMATION
  Report Type: Report from Study
  Country: BE (occurrence: BE)
  Receive Date: 20160912
  Receipt Date: 20160912
  Transmission Date: 20161109
  Serious: Yes (Life-Threatening, Hospitalization)
  Sender: FDA-Public Use
  Company Number: BE-CELGENEUS-BEL-2015094047

PATIENT
  Age: 69 Year
  Sex: Male
  Weight: 61 kg

DRUGS (10)
  1. AZACITIDINE. [Suspect]
     Active Substance: AZACITIDINE
     Indication: ACUTE MYELOID LEUKAEMIA
     Route: 058
     Dates: start: 20150316, end: 20150320
  2. DLI [Suspect]
     Active Substance: LYMPHOCYTES
     Dosage: 1X10EXP7CD3+ CELLS/KG BODY
     Route: 065
     Dates: start: 20150812
  3. DLI [Suspect]
     Active Substance: LYMPHOCYTES
     Indication: ACUTE MYELOID LEUKAEMIA
     Dosage: 1X10EXP6CD3+ CELLS/KG BODY
     Route: 065
     Dates: start: 20150415
  4. AZACITIDINE. [Suspect]
     Active Substance: AZACITIDINE
     Indication: MYELODYSPLASTIC SYNDROME
     Route: 058
     Dates: start: 20150413, end: 20150817
  5. PANTOMED [Concomitant]
     Active Substance: DEXPANTHENOL
     Indication: PROPHYLAXIS AGAINST GASTROINTESTINAL ULCER
     Dosage: 20 MILLILITER
     Route: 065
  6. DLI [Suspect]
     Active Substance: LYMPHOCYTES
     Indication: MYELODYSPLASTIC SYNDROME
     Dosage: 5.53X10EXP6CD3+ CELLS/KG BODY
     Route: 065
     Dates: start: 20150616
  7. NOXAFIL [Concomitant]
     Active Substance: POSACONAZOLE
     Indication: INFECTION PROPHYLAXIS
     Route: 065
  8. BACTRIM [Concomitant]
     Active Substance: SULFAMETHOXAZOLE\TRIMETHOPRIM
     Indication: INFECTION PROPHYLAXIS
     Dosage: 20 MILLIGRAM
     Route: 065
  9. AZACITIDINE. [Suspect]
     Active Substance: AZACITIDINE
     Route: 058
     Dates: end: 20151026
  10. DLI [Suspect]
     Active Substance: LYMPHOCYTES
     Route: 065

REACTIONS (2)
  - Pneumonia [Recovered/Resolved]
  - General physical health deterioration [Not Recovered/Not Resolved]

NARRATIVE: CASE EVENT DATE: 20150913
